FAERS Safety Report 8088733-X (Version None)
Quarter: 2012Q1

REPORT INFORMATION
  Report Type: 
  Country: None (occurrence: None)
  Receive Date: 20120128
  Receipt Date: 20110601
  Transmission Date: 20120608
  Serious: No
  Sender: FDA-Public Use
  Company Number: US-ABBOTT-11P-163-0729763-00

PATIENT
  Sex: Female

DRUGS (5)
  1. VECTICAL [Concomitant]
     Indication: PSORIASIS
     Dosage: ON /OFF WEEK
     Route: 061
  2. TOPICAL STEROIDS [Concomitant]
     Indication: PSORIASIS
     Dosage: 2 WEEKS ON 1 WEEK OFF
  3. HUMIRA [Suspect]
     Dates: start: 20110520
  4. MULTI-VITAMINS [Concomitant]
     Indication: PRODUCT USED FOR UNKNOWN INDICATION
     Dosage: DAILY
  5. HUMIRA [Suspect]
     Indication: PSORIASIS
     Dates: start: 20110513

REACTIONS (1)
  - INJECTION SITE PAIN [None]
